FAERS Safety Report 24267727 (Version 1)
Quarter: 2024Q3

REPORT INFORMATION
  Report Type: Spontaneous
  Country: US (occurrence: US)
  Receive Date: 20240830
  Receipt Date: 20240830
  Transmission Date: 20241017
  Serious: No
  Sender: PFIZER
  Company Number: US-PFIZER INC-202400245322

PATIENT
  Age: 69 Year
  Sex: Female
  Weight: 79.83 kg

DRUGS (2)
  1. DILTIAZEM HYDROCHLORIDE [Suspect]
     Active Substance: DILTIAZEM HYDROCHLORIDE
     Indication: Hypertension
     Dosage: 120 MG, 2X/DAY (ONLY TAKING ONE DILTIAZEM AT NIGHT)
     Dates: start: 2007
  2. VITAMINS NOS [Concomitant]
     Active Substance: VITAMINS
     Dosage: UNK

REACTIONS (3)
  - Anaemia [Unknown]
  - Incorrect dose administered [Unknown]
  - Off label use [Unknown]
